FAERS Safety Report 5481930-9 (Version None)
Quarter: 2007Q4

REPORT INFORMATION
  Report Type: 
  Country: None (occurrence: None)
  Receive Date: 20071010
  Receipt Date: 20071001
  Transmission Date: 20080405
  Serious: Yes (Hospitalization, Other)
  Sender: FDA-Public Use
  Company Number: US-ABBOTT-04P-163-0257060-00

PATIENT
  Sex: Female
  Weight: 65.83 kg

DRUGS (17)
  1. HUMIRA [Suspect]
     Indication: RHEUMATOID ARTHRITIS
     Route: 058
     Dates: start: 20030701, end: 20040423
  2. HUMIRA [Suspect]
     Indication: PSORIATIC ARTHROPATHY
     Route: 058
     Dates: start: 20040507, end: 20040521
  3. HUMIRA [Suspect]
     Route: 058
     Dates: start: 20040906, end: 20070101
  4. HUMIRA [Suspect]
     Route: 058
     Dates: start: 20070101, end: 20070924
  5. ATENOLOL [Concomitant]
     Indication: BLOOD PRESSURE INCREASED
     Route: 048
  6. FOLIC ACID [Concomitant]
     Indication: RHEUMATOID ARTHRITIS
     Route: 048
     Dates: start: 19930101
  7. PREDNISONE [Concomitant]
     Indication: RHEUMATOID ARTHRITIS
     Route: 048
  8. PREDNISONE [Concomitant]
     Route: 048
     Dates: start: 20030501
  9. ACETYLSALICYLIC ACID [Concomitant]
     Indication: DRUG USE FOR UNKNOWN INDICATION
     Route: 048
     Dates: start: 20050301
  10. VITAMIN CAP [Concomitant]
     Indication: VITAMIN SUPPLEMENTATION
     Route: 048
  11. VITAMIN CAP [Concomitant]
     Indication: MEDICAL DIET
  12. GLUTEROL [Concomitant]
     Indication: DIABETES MELLITUS
  13. ETODOLAC [Concomitant]
     Indication: RHEUMATOID ARTHRITIS
     Route: 048
  14. ETODOLAC [Concomitant]
     Route: 048
  15. CLONIDINE [Concomitant]
     Indication: BLOOD PRESSURE INCREASED
     Route: 048
     Dates: start: 20040401
  16. ERGOCALCIFEROL [Concomitant]
     Indication: MEDICAL DIET
     Route: 048
  17. CHITOSAM [Concomitant]
     Indication: BLOOD CHOLESTEROL
     Route: 048

REACTIONS (13)
  - ABDOMINAL PAIN [None]
  - DIARRHOEA [None]
  - ERYTHEMA [None]
  - INJECTION SITE ERYTHEMA [None]
  - INJECTION SITE INDURATION [None]
  - INJECTION SITE PAIN [None]
  - INJECTION SITE PRURITUS [None]
  - INJECTION SITE WARMTH [None]
  - INTESTINAL OBSTRUCTION [None]
  - PRURITUS [None]
  - RASH [None]
  - SWELLING FACE [None]
  - VOMITING [None]
